FAERS Safety Report 9045248 (Version 1)
Quarter: 2013Q1

REPORT INFORMATION
  Report Type: Report from Study
  Country: US (occurrence: US)
  Receive Date: 20130131
  Receipt Date: 20130131
  Transmission Date: 20140127
  Serious: No
  Sender: FDA-Public Use
  Company Number: US-ABBOTT-12P-163-0934542-00

PATIENT
  Age: 48 Year
  Sex: Female

DRUGS (14)
  1. HUMIRA [Suspect]
     Indication: RHEUMATOID ARTHRITIS
     Route: 058
     Dates: start: 200602, end: 201002
  2. HUMIRA [Suspect]
     Route: 058
     Dates: start: 201202, end: 201207
  3. HUMIRA [Suspect]
     Route: 058
     Dates: start: 201207
  4. METHOTREXATE [Concomitant]
     Indication: RHEUMATOID ARTHRITIS
     Dosage: 2.5MG 8 TABLETS WEEKLY
  5. NAPROXEN [Concomitant]
     Indication: PAIN
  6. FOLIC ACID [Concomitant]
     Indication: STOMATITIS
  7. DEXILANT [Concomitant]
     Indication: ABDOMINAL DISCOMFORT
     Dates: end: 201207
  8. VITAMIN D3 [Concomitant]
     Indication: VITAMIN SUPPLEMENTATION
     Dates: end: 201207
  9. JOLESSA [Concomitant]
     Indication: CONTRACEPTION
  10. TRILIPIX [Concomitant]
     Indication: BLOOD TRIGLYCERIDES INCREASED
  11. HUMALOG [Concomitant]
     Indication: PRODUCT USED FOR UNKNOWN INDICATION
     Dosage: PEN 15 IU IN THE MORNING AND AFTERNOON, 25IU AT DINNER
  12. LANTUS [Concomitant]
     Indication: PRODUCT USED FOR UNKNOWN INDICATION
     Dosage: AT BEDTIME
  13. PRILOSEC [Concomitant]
     Indication: ABDOMINAL DISCOMFORT
  14. AMARYL [Concomitant]

REACTIONS (17)
  - Thrombosis [Unknown]
  - Type 2 diabetes mellitus [Unknown]
  - Gastric disorder [Unknown]
  - Drug ineffective [Recovering/Resolving]
  - Pain [Recovering/Resolving]
  - Blood triglycerides increased [Unknown]
  - Diabetic foot [Not Recovered/Not Resolved]
  - Rheumatoid arthritis [Not Recovered/Not Resolved]
  - Pain [Not Recovered/Not Resolved]
  - Feeling abnormal [Not Recovered/Not Resolved]
  - Abasia [Not Recovered/Not Resolved]
  - Mental disorder [Not Recovered/Not Resolved]
  - Pyrexia [Not Recovered/Not Resolved]
  - Headache [Not Recovered/Not Resolved]
  - Blood glucose increased [Not Recovered/Not Resolved]
  - Hypertension [Not Recovered/Not Resolved]
  - Inappropriate schedule of drug administration [Not Recovered/Not Resolved]
